FAERS Safety Report 9523120 (Version 2)
Quarter: 2013Q4

REPORT INFORMATION
  Report Type: Spontaneous
  Country: FR (occurrence: FR)
  Receive Date: 20130913
  Receipt Date: 20131112
  Transmission Date: 20140711
  Serious: Yes (Hospitalization)
  Sender: FDA-Public Use
  Company Number: FR-TEVA-430288ISR

PATIENT
  Age: 79 Year
  Sex: Male
  Weight: 77 kg

DRUGS (23)
  1. LOSARTAN [Suspect]
     Dosage: 100 MILLIGRAM DAILY;
     Route: 048
     Dates: end: 20130806
  2. FUROSEMIDE [Suspect]
     Dosage: 40 MILLIGRAM DAILY;
     Route: 048
     Dates: end: 20130806
  3. ESOMEPRAZOLE [Suspect]
     Dosage: 40 MILLIGRAM DAILY;
     Route: 048
     Dates: end: 20130816
  4. VOGALENE [Suspect]
     Dosage: 1 TO 3 DF DAILY
     Route: 048
     Dates: start: 20130802
  5. XARELTO [Suspect]
     Route: 048
     Dates: start: 20130801, end: 20130806
  6. LEVACT [Suspect]
     Dosage: 220 MILLIGRAM DAILY;
     Route: 042
     Dates: start: 20130731, end: 20130801
  7. ZOMETA [Suspect]
     Route: 041
     Dates: end: 20130706
  8. METEOSPASMYL [Suspect]
     Dosage: 6 DOSAGE FORMS DAILY;
     Route: 048
     Dates: end: 20130806
  9. NEULASTA [Suspect]
     Route: 058
     Dates: start: 20130805, end: 20130805
  10. BECLOSPIN [Suspect]
     Route: 055
  11. BACTRIM [Concomitant]
  12. LEDERFOLINE [Concomitant]
  13. VALACICLOVIR [Concomitant]
  14. AMIODARONE [Concomitant]
  15. TAMSULOSINE [Concomitant]
  16. KALEORID [Concomitant]
     Dates: end: 20130806
  17. OROCAL [Concomitant]
  18. OXYCONTIN [Concomitant]
  19. SOLUPRED [Concomitant]
  20. ATROVENT [Concomitant]
  21. VENTOLINE [Concomitant]
  22. OMNIPAQUE 350 [Concomitant]
     Dosage: 240 CC
     Dates: start: 20130722, end: 20130722
  23. PREDNISONE [Concomitant]

REACTIONS (1)
  - Renal failure acute [Recovered/Resolved]
